FAERS Safety Report 8744108 (Version 2)
Quarter: 2013Q2

REPORT INFORMATION
  Report Type: Spontaneous
  Country: US (occurrence: US)
  Receive Date: 20120824
  Receipt Date: 20130401
  Transmission Date: 20140414
  Serious: Yes (Hospitalization, Other)
  Sender: FDA-Public Use
  Company Number: US-ASTRAZENECA-2012SE57829

PATIENT
  Age: 64 Year
  Sex: Female
  Weight: 80.3 kg

DRUGS (14)
  1. NEXIUM [Suspect]
     Indication: GASTROOESOPHAGEAL REFLUX DISEASE
     Route: 048
     Dates: start: 2008, end: 201210
  2. NEXIUM [Suspect]
     Indication: GASTROOESOPHAGEAL REFLUX DISEASE
     Route: 048
     Dates: start: 201303
  3. GABAPENTIN [Concomitant]
     Indication: SLEEP DISORDER
     Route: 048
  4. METFORMIN [Concomitant]
     Indication: DIABETES MELLITUS
     Route: 048
  5. LEVOTHYROXINE [Concomitant]
     Indication: THYROID DISORDER
     Route: 048
  6. ROPINIROLE [Concomitant]
     Indication: RESTLESS LEGS SYNDROME
     Dosage: 1 MG, AT NIGHT, GENERIC
     Route: 048
  7. SERTRALINE [Concomitant]
     Indication: DEPRESSION
     Route: 048
  8. VITAMIN D [Concomitant]
     Indication: OSTEOPOROSIS
     Route: 048
  9. CALCIUM [Concomitant]
     Indication: OSTEOPOROSIS
     Route: 048
  10. ZYRTEC [Concomitant]
     Dosage: 10 MG EVERY MORNING, GENERIC
     Route: 048
  11. FEXOFENADINE [Concomitant]
     Route: 048
  12. BENADRYL [Concomitant]
     Dosage: 150 MG AT NIGHT GENERIC
     Route: 048
  13. PREDNISONE [Concomitant]
     Indication: URTICARIA
     Route: 048
  14. SIMVASTATIN [Concomitant]
     Indication: BLOOD CHOLESTEROL ABNORMAL
     Route: 048

REACTIONS (14)
  - Road traffic accident [Unknown]
  - Hip fracture [Unknown]
  - Hand fracture [Unknown]
  - Upper limb fracture [Unknown]
  - Spinal fracture [Unknown]
  - Head injury [Unknown]
  - Chest injury [Unknown]
  - Chest discomfort [Unknown]
  - Oesophageal stenosis [Unknown]
  - Gastrooesophageal reflux disease [Unknown]
  - Blood cholesterol increased [Unknown]
  - Urticaria [Unknown]
  - Intentional drug misuse [Unknown]
  - Drug dose omission [Unknown]
